FAERS Safety Report 5041182-0 (Version None)
Quarter: 2006Q3

REPORT INFORMATION
  Report Type: 
  Country: None (occurrence: None)
  Receive Date: 20060703
  Receipt Date: 20060614
  Transmission Date: 20061208
  Serious: Yes (Hospitalization)
  Sender: FDA-Public Use
  Company Number: US-GLAXOSMITHKLINE-A0609198A

PATIENT
  Age: 24 Year
  Sex: Male
  Weight: 68.2 kg

DRUGS (2)
  1. LAMICTAL [Suspect]
     Indication: EPILEPSY
     Dosage: 100MG TWICE PER DAY
     Route: 048
     Dates: start: 20060101
  2. NO CONCURRENT MEDICATION [Concomitant]

REACTIONS (10)
  - BLOOD UREA INCREASED [None]
  - CONVULSION [None]
  - DEHYDRATION [None]
  - DRUG INEFFECTIVE [None]
  - DRUG LEVEL BELOW THERAPEUTIC [None]
  - FAECAL INCONTINENCE [None]
  - HYPERKALAEMIA [None]
  - HYPONATRAEMIA [None]
  - INCONTINENCE [None]
  - URINARY INCONTINENCE [None]
